FAERS Safety Report 22155139 (Version 6)
Quarter: 2023Q4

REPORT INFORMATION
  Report Type: Spontaneous
  Country: US (occurrence: US)
  Receive Date: 20230330
  Receipt Date: 20231227
  Transmission Date: 20240109
  Serious: No
  Sender: FDA-Public Use
  Company Number: US-002147023-NVSC2023US073957

PATIENT
  Age: 63 Year
  Sex: Male

DRUGS (4)
  1. TAFINLAR [Suspect]
     Active Substance: DABRAFENIB MESYLATE
     Indication: Salivary gland cancer
     Dosage: 150 MG, QD
     Route: 048
     Dates: start: 20230304
  2. TAFINLAR [Suspect]
     Active Substance: DABRAFENIB MESYLATE
     Dosage: 100 MG, Q12H
     Route: 048
     Dates: start: 202303
  3. MEKINIST [Suspect]
     Active Substance: TRAMETINIB DIMETHYL SULFOXIDE
     Indication: Salivary gland cancer
     Dosage: 2 MG, QD
     Route: 048
     Dates: start: 202303
  4. MEKINIST [Suspect]
     Active Substance: TRAMETINIB DIMETHYL SULFOXIDE
     Dosage: 1.5 MG, QD
     Route: 048

REACTIONS (7)
  - Acne [Unknown]
  - Diarrhoea [Unknown]
  - Dizziness [Unknown]
  - Erythema [Unknown]
  - Pyrexia [Unknown]
  - Product use in unapproved indication [Unknown]
  - Visual impairment [Unknown]

NARRATIVE: CASE EVENT DATE: 20230301
